FAERS Safety Report 6657042-5 (Version None)
Quarter: 2010Q1

REPORT INFORMATION
  Report Type: 
  Country: None (occurrence: None)
  Receive Date: 20100330
  Receipt Date: 20100322
  Transmission Date: 20100710
  Serious: Yes (Other)
  Sender: FDA-Public Use
  Company Number: IE-WYE-G05801610

PATIENT

DRUGS (1)
  1. ZOTON FASTAB [Suspect]
     Dosage: UNKNOWN

REACTIONS (1)
  - ATRIAL FIBRILLATION [None]
